FAERS Safety Report 18946484 (Version 1)
Quarter: 2021Q1

REPORT INFORMATION
  Report Type: Report from Study
  Country: JP (occurrence: JP)
  Receive Date: 20210226
  Receipt Date: 20210226
  Transmission Date: 20210420
  Serious: Yes (Hospitalization)
  Sender: FDA-Public Use
  Company Number: JP-BIOGEN-2019BI00761566

PATIENT
  Age: 44 Year
  Sex: Male
  Weight: 35.3 kg

DRUGS (11)
  1. XYLOCAINE [Concomitant]
     Active Substance: LIDOCAINE HYDROCHLORIDE
     Indication: ANAESTHESIA PROCEDURE
     Route: 050
  2. DALACIN [Concomitant]
     Active Substance: CLINDAMYCIN
     Route: 065
     Dates: start: 20190628, end: 20190706
  3. SPELEAR [Concomitant]
     Active Substance: FUDOSTEINE
     Indication: SPINAL MUSCULAR ATROPHY
     Route: 050
  4. FIRSTCIN [Concomitant]
     Active Substance: CEFOZOPRAN HYDROCHLORIDE
     Route: 065
     Dates: start: 20190628, end: 20190706
  5. SPINRAZA [Suspect]
     Active Substance: NUSINERSEN
     Indication: SPINAL MUSCULAR ATROPHY
     Route: 050
     Dates: start: 201808, end: 201808
  6. THEOPHYLLINE [Concomitant]
     Active Substance: THEOPHYLLINE ANHYDROUS
     Indication: SPINAL MUSCULAR ATROPHY
     Route: 050
  7. BROMHEXINE HYDROCHLORIDE [Concomitant]
     Active Substance: BROMHEXINE HYDROCHLORIDE
     Indication: SPINAL MUSCULAR ATROPHY
     Route: 050
  8. SPINRAZA [Suspect]
     Active Substance: NUSINERSEN
     Route: 050
     Dates: start: 20190822
  9. CANDESARTAN. [Concomitant]
     Active Substance: CANDESARTAN
     Indication: HYPERTENSION
     Route: 050
  10. SAWACILLIN [Concomitant]
     Active Substance: AMOXICILLIN
     Route: 065
     Dates: start: 20190628, end: 20190706
  11. AUGMENTIN [Concomitant]
     Active Substance: AMOXICILLIN\CLAVULANATE POTASSIUM
     Route: 065
     Dates: start: 20190628, end: 20190706

REACTIONS (3)
  - Hydronephrosis [Recovered/Resolved]
  - Pyelonephritis [Unknown]
  - Cellulitis [Recovered/Resolved]

NARRATIVE: CASE EVENT DATE: 20190709
